FAERS Safety Report 7435529-5 (Version None)
Quarter: 2011Q2

REPORT INFORMATION
  Report Type: 
  Country: None (occurrence: None)
  Receive Date: 20110425
  Receipt Date: 20110418
  Transmission Date: 20111010
  Serious: Yes (Other)
  Sender: FDA-Public Use
  Company Number: DE-ELI_LILLY_AND_COMPANY-DE201103008730

PATIENT
  Age: 55 Year
  Sex: Male

DRUGS (2)
  1. BYETTA [Suspect]
     Indication: TYPE 2 DIABETES MELLITUS
     Dosage: 5 UG, UNK
     Route: 058
     Dates: start: 20110302
  2. INSULIN [Concomitant]

REACTIONS (4)
  - ATRIAL FLUTTER [None]
  - HYPERCHOLESTEROLAEMIA [None]
  - OBESITY [None]
  - OFF LABEL USE [None]
